FAERS Safety Report 9284531 (Version 1)
Quarter: 2013Q2

REPORT INFORMATION
  Report Type: Report from Study
  Country: US (occurrence: US)
  Receive Date: 20130510
  Receipt Date: 20130510
  Transmission Date: 20140414
  Serious: Yes (Hospitalization)
  Sender: FDA-Public Use
  Company Number: US-ABBOTT-13P-163-1086138-00

PATIENT
  Age: 59 Year
  Sex: Female
  Weight: 69.01 kg

DRUGS (10)
  1. HUMIRA [Suspect]
     Indication: CROHN^S DISEASE
     Route: 058
     Dates: start: 20130304
  2. VIVELLE [Concomitant]
     Indication: HORMONE REPLACEMENT THERAPY
  3. ESTRING [Concomitant]
     Indication: HORMONE REPLACEMENT THERAPY
  4. ATENOLOL [Concomitant]
     Indication: PRODUCT USED FOR UNKNOWN INDICATION
  5. NORVASC [Concomitant]
     Indication: HYPERTENSION
  6. LIPOFEN [Concomitant]
     Indication: BLOOD TRIGLYCERIDES
  7. PREDNISONE [Concomitant]
     Indication: PRODUCT USED FOR UNKNOWN INDICATION
  8. MULTIVITAMIN [Concomitant]
     Indication: PRODUCT USED FOR UNKNOWN INDICATION
  9. VITAMIN D [Concomitant]
     Indication: PRODUCT USED FOR UNKNOWN INDICATION
  10. VITAMIN B12 [Concomitant]
     Indication: PRODUCT USED FOR UNKNOWN INDICATION

REACTIONS (9)
  - Intestinal obstruction [Recovering/Resolving]
  - Pancreatitis [Recovering/Resolving]
  - Gastroenteritis salmonella [Recovering/Resolving]
  - Incorrect dose administered [Not Recovered/Not Resolved]
  - Wrong technique in drug usage process [Not Recovered/Not Resolved]
  - Drug dose omission [Not Recovered/Not Resolved]
  - Drug ineffective [Not Recovered/Not Resolved]
  - Wrong technique in drug usage process [Not Recovered/Not Resolved]
  - Incorrect dose administered [Not Recovered/Not Resolved]
